FAERS Safety Report 11339653 (Version 1)
Quarter: 2015Q3

REPORT INFORMATION
  Report Type: Spontaneous
  Country: US (occurrence: None)
  Receive Date: 20150804
  Receipt Date: 20150804
  Transmission Date: 20151125
  Serious: Yes (Disabling)
  Sender: FDA-Public Use
  Company Number: None

PATIENT
  Age: 37 Year
  Sex: Female
  Weight: 54.43 kg

DRUGS (1)
  1. DOXYCYCLINE HYCLATE. [Suspect]
     Active Substance: DOXYCYCLINE HYCLATE
     Indication: DERMATITIS
     Route: 048
     Dates: end: 20150701

REACTIONS (7)
  - Peripheral swelling [None]
  - Fall [None]
  - Skin lesion [None]
  - Scleroderma [None]
  - Skin tightness [None]
  - Swelling face [None]
  - Swollen tongue [None]

NARRATIVE: CASE EVENT DATE: 20150705
